FAERS Safety Report 4991481-3 (Version None)
Quarter: 2006Q2

REPORT INFORMATION
  Report Type: 
  Country: None (occurrence: None)
  Receive Date: 20060504
  Receipt Date: 20060425
  Transmission Date: 20061013
  Serious: Yes (Hospitalization)
  Sender: FDA-Public Use
  Company Number: CA-JNJFOC-20060405600

PATIENT
  Sex: Female

DRUGS (2)
  1. REMICADE [Suspect]
     Indication: ANKYLOSING SPONDYLITIS
     Route: 042
     Dates: start: 20040201, end: 20060301
  2. METHOTREXATE [Suspect]
     Indication: ANKYLOSING SPONDYLITIS
     Dates: end: 20060301

REACTIONS (6)
  - LUNG INFECTION [None]
  - LYMPH GLAND INFECTION [None]
  - MEDIASTINAL ABSCESS [None]
  - STAPHYLOCOCCAL BACTERAEMIA [None]
  - STAPHYLOCOCCAL INFECTION [None]
  - THYROID NEOPLASM [None]
